FAERS Safety Report 15440505 (Version 7)
Quarter: 2019Q4

REPORT INFORMATION
  Report Type: Report from Study
  Country: CZ (occurrence: CZ)
  Receive Date: 20180928
  Receipt Date: 20191209
  Transmission Date: 20200122
  Serious: Yes (Other)
  Sender: FDA-Public Use
  Company Number: PHHY2018CZ017517

PATIENT
  Weight: 21.2 kg

DRUGS (7)
  1. DABRAFENIB [Suspect]
     Active Substance: DABRAFENIB
     Indication: METASTATIC MALIGNANT MELANOMA
     Dosage: UNK
     Route: 048
     Dates: start: 20180102
  2. EUTHYROX [Concomitant]
     Active Substance: LEVOTHYROXINE SODIUM
     Indication: PRODUCT USED FOR UNKNOWN INDICATION
     Dosage: 25 UG, QD (ON AN EMPTY STOMACH)
     Route: 065
  3. EUTHYROX [Concomitant]
     Active Substance: LEVOTHYROXINE SODIUM
     Dosage: 50 UG, QD
     Route: 065
     Dates: start: 20180130
  4. TRAMETINIB [Suspect]
     Active Substance: TRAMETINIB
     Indication: ASTROCYTOMA, LOW GRADE
     Dosage: REDUCTION DOSE -25%
     Route: 048
  5. DABRAFENIB [Suspect]
     Active Substance: DABRAFENIB
     Dosage: REDUCTION DOSE -25%
     Route: 048
  6. SUMETROLIM [Concomitant]
     Active Substance: SULFAMETHOXAZOLE\TRIMETHOPRIM
     Indication: PROPHYLAXIS
     Dosage: 2 DF (480), (DAILY ONLY EVERY MO, TUE (EACH WEEK))
     Route: 065
     Dates: start: 20170831
  7. TRAMETINIB [Suspect]
     Active Substance: TRAMETINIB
     Indication: METASTATIC MALIGNANT MELANOMA
     Dosage: 0.53 MG, QD (ON AN EMPTY STOMACH) (FORMULATION: SUSPENSION)
     Route: 048
     Dates: start: 20180102

REACTIONS (19)
  - Dilatation ventricular [Unknown]
  - Eczema [Unknown]
  - Anaemia [Unknown]
  - Dental caries [Recovered/Resolved]
  - Aspartate aminotransferase increased [Unknown]
  - Viral infection [Unknown]
  - Hypothyroidism [Unknown]
  - Dilatation atrial [Recovered/Resolved]
  - Oral herpes [Recovered/Resolved]
  - Amylase increased [Recovered/Resolved]
  - Tricuspid valve incompetence [Recovered/Resolved]
  - Right ventricular ejection fraction decreased [Recovered/Resolved]
  - Tricuspid valve incompetence [Recovered/Resolved]
  - Fatigue [Unknown]
  - Arthralgia [Unknown]
  - Solar dermatitis [Recovered/Resolved]
  - Chills [Unknown]
  - Decreased appetite [Unknown]
  - Dilatation atrial [Recovered/Resolved]

NARRATIVE: CASE EVENT DATE: 20180130
